FAERS Safety Report 8382416-4 (Version None)
Quarter: 2012Q2

REPORT INFORMATION
  Report Type: 
  Country: None (occurrence: None)
  Receive Date: 20120524
  Receipt Date: 20120515
  Transmission Date: 20120825
  Serious: Yes (Death, Other)
  Sender: FDA-Public Use
  Company Number: PHHY2012CN042659

PATIENT
  Age: 46 Year
  Sex: Male

DRUGS (11)
  1. CYTARABINE [Concomitant]
     Indication: ACUTE MYELOID LEUKAEMIA
     Dosage: 150 MG/M 2 EVERY 12 H ON DAYS 1-7
  2. CYTOXAN [Concomitant]
     Indication: ACUTE MYELOID LEUKAEMIA
     Dosage: 60 MG/KG/DAY, DAYS -3 TO -2
  3. IMATINIB MESYLATE [Suspect]
     Dosage: 600 MG/DAY
  4. METHOTREXATE [Concomitant]
     Indication: ACUTE MYELOID LEUKAEMIA
  5. DAUNORUBICIN HYDROCHLORIDE [Concomitant]
     Indication: ACUTE MYELOID LEUKAEMIA
     Dosage: 45 MG/M 2 ON DAYS 1-3
  6. IMATINIB MESYLATE [Suspect]
     Dosage: 400 MG/DAY
  7. HOMOHARRINGTONINE [Concomitant]
     Indication: ACUTE MYELOID LEUKAEMIA
     Dosage: 6 MG ON DAYS 1-3
  8. BUSULFAN [Concomitant]
     Indication: ACUTE MYELOID LEUKAEMIA
     Dosage: 3.2 MG/KG/DAY, DAYS -7 TO -4
  9. IMATINIB MESYLATE [Suspect]
     Indication: ACUTE MYELOID LEUKAEMIA
     Dosage: 400 MG/DAY
  10. IMATINIB MESYLATE [Suspect]
     Dosage: 400 MG/DAY
  11. ACLARUBICIN [Concomitant]
     Indication: ACUTE MYELOID LEUKAEMIA
     Dosage: 20 MG ON DAYS 1-7

REACTIONS (10)
  - GENERAL PHYSICAL HEALTH DETERIORATION [None]
  - ORGANISING PNEUMONIA [None]
  - LUNG INFECTION [None]
  - RESPIRATORY FAILURE [None]
  - DYSPNOEA [None]
  - LEUKAEMIA RECURRENT [None]
  - THERAPEUTIC RESPONSE DECREASED [None]
  - PYREXIA [None]
  - INTERSTITIAL LUNG DISEASE [None]
  - GRAFT VERSUS HOST DISEASE [None]
